FAERS Safety Report 15440168 (Version 1)
Quarter: 2018Q3

REPORT INFORMATION
  Report Type: Spontaneous
  Country: US (occurrence: US)
  Receive Date: 20180925
  Receipt Date: 20180925
  Transmission Date: 20181010
  Serious: Yes (Hospitalization)
  Sender: FDA-Public Use
  Company Number: None

PATIENT
  Sex: Female

DRUGS (12)
  1. HYOSCYAMINE. [Concomitant]
     Active Substance: HYOSCYAMINE
  2. HEPARIN [Concomitant]
     Active Substance: HEPARIN SODIUM
  3. PROCHLOPER [Concomitant]
  4. HYDROMORPHON [Concomitant]
     Active Substance: HYDROMORPHONE
  5. ZINC. [Concomitant]
     Active Substance: ZINC
  6. VITAMIN E [Concomitant]
     Active Substance: .ALPHA.-TOCOPHEROL
  7. OCTREOTIDE. [Suspect]
     Active Substance: OCTREOTIDE
     Indication: ENDOCRINE DISORDER
     Route: 058
     Dates: start: 20180323
  8. CARAFATE [Concomitant]
     Active Substance: SUCRALFATE
  9. PANCREAZE [Concomitant]
     Active Substance: PANCRELIPASE AMYLASE\PANCRELIPASE LIPASE\PANCRELIPASE PROTEASE
  10. ZOFRAN [Concomitant]
     Active Substance: ONDANSETRON HYDROCHLORIDE
  11. NEXIUM [Concomitant]
     Active Substance: ESOMEPRAZOLE MAGNESIUM
  12. VITAMIN A [Concomitant]
     Active Substance: VITAMIN A

REACTIONS (1)
  - Therapy change [None]
